FAERS Safety Report 5878199-X (Version None)
Quarter: 2008Q3

REPORT INFORMATION
  Report Type: 
  Country: None (occurrence: None)
  Receive Date: 20080911
  Receipt Date: 20080905
  Transmission Date: 20090109
  Serious: Yes (Other)
  Sender: FDA-Public Use
  Company Number: PHEH2008US07980

PATIENT
  Sex: Female

DRUGS (1)
  1. ENABLEX [Suspect]
     Dosage: 7.5 MG, UNK

REACTIONS (6)
  - CONSTIPATION [None]
  - DRY MOUTH [None]
  - FLANK PAIN [None]
  - PAIN IN EXTREMITY [None]
  - VEIN DISORDER [None]
  - WEIGHT DECREASED [None]
